FAERS Safety Report 9587797 (Version 4)
Quarter: 2014Q1

REPORT INFORMATION
  Report Type: Spontaneous
  Country: US (occurrence: US)
  Receive Date: 20131003
  Receipt Date: 20140109
  Transmission Date: 20141002
  Serious: Yes (Other)
  Sender: FDA-Public Use
  Company Number: US-PFIZER INC-2013282231

PATIENT
  Age: 83 Year
  Sex: Female
  Weight: 47.6 kg

DRUGS (4)
  1. CELEBREX [Suspect]
     Indication: ARTHRITIS
     Dosage: 200 MG, 1X/DAY
  2. NEURONTIN [Suspect]
     Dosage: 200 MG, 1X/DAY
  3. ZOLOFT [Suspect]
     Dosage: 25 MG, 1X/DAY
  4. LEVODOPA-CARBIDOPA [Concomitant]
     Indication: INJURY
     Dosage: CARBIDOPA 25MG/ LEVODOPA 100 MG, 3X/DAY

REACTIONS (4)
  - VIIth nerve paralysis [Not Recovered/Not Resolved]
  - Bone loss [Unknown]
  - Eye disorder [Not Recovered/Not Resolved]
  - Viral infection [Unknown]
